FAERS Safety Report 20086073 (Version 1)
Quarter: 2021Q4

REPORT INFORMATION
  Report Type: Report from Study
  Country: US (occurrence: US)
  Receive Date: 20211118
  Receipt Date: 20211118
  Transmission Date: 20220303
  Serious: Yes (Other)
  Sender: FDA-Public Use
  Company Number: US-TAKEDA-US202022426

PATIENT
  Sex: Female

DRUGS (1)
  1. HUMAN IMMUNOGLOBULIN G [Suspect]
     Active Substance: HUMAN IMMUNOGLOBULIN G
     Indication: Immunodeficiency common variable
     Dosage: 15 GRAM, EVERY 10 DAYS
     Route: 058

REACTIONS (5)
  - Diverticulitis [Unknown]
  - Urinary tract infection [Unknown]
  - Infusion site swelling [Unknown]
  - Fatigue [Unknown]
  - Unevaluable event [Unknown]
